FAERS Safety Report 19813989 (Version 1)
Quarter: 2021Q3

REPORT INFORMATION
  Report Type: Spontaneous
  Country: SI (occurrence: SI)
  Receive Date: 20210910
  Receipt Date: 20210910
  Transmission Date: 20211014
  Serious: Yes (Death, Hospitalization)
  Sender: FDA-Public Use
  Company Number: SI-LUPIN PHARMACEUTICALS INC.-2021-16872

PATIENT
  Age: 46 Year
  Sex: Female

DRUGS (19)
  1. PANTOPRAZOLE [Suspect]
     Active Substance: PANTOPRAZOLE
     Indication: PRODUCT USED FOR UNKNOWN INDICATION
     Dosage: 40 MILLIGRAM, QD
     Route: 042
     Dates: start: 202008
  2. CO?AMOXICLAV [Concomitant]
     Active Substance: AMOXICILLIN\CLAVULANATE POTASSIUM
     Indication: PHARYNGITIS
     Dosage: 1.2 GRAM, TID
     Route: 065
     Dates: start: 202008
  3. METHYLPREDNISOLONE. [Suspect]
     Active Substance: METHYLPREDNISOLONE
     Indication: STEVENS-JOHNSON SYNDROME
     Dosage: 40 MILLIGRAM, QD
     Route: 042
     Dates: start: 202008
  4. CITANEST [Suspect]
     Active Substance: PRILOCAINE
     Indication: ANALGESIC THERAPY
     Dosage: 50 MILLIGRAM
     Route: 065
     Dates: start: 202008
  5. SODIUM FUSIDATE [Suspect]
     Active Substance: FUSIDATE SODIUM
     Indication: STEVENS-JOHNSON SYNDROME
     Dosage: UNK
     Route: 065
     Dates: start: 202008
  6. XYLOCAINE [Concomitant]
     Active Substance: LIDOCAINE HYDROCHLORIDE
     Indication: ABDOMINAL PAIN
     Dosage: UNK ELASTOMERIC PUMP
     Route: 065
     Dates: start: 202008
  7. ONDANSETRAN [Concomitant]
     Active Substance: ONDANSETRON HYDROCHLORIDE
     Indication: ABDOMINAL PAIN
     Dosage: UNK
     Route: 065
     Dates: start: 202008
  8. SALINE [Suspect]
     Active Substance: SODIUM CHLORIDE
     Indication: PARENTERAL NUTRITION
     Dosage: 1000 MILLILITER
     Route: 065
  9. BETAMETHASONE. [Suspect]
     Active Substance: BETAMETHASONE
     Indication: SKIN LESION
     Dosage: UNK, LOTION
     Route: 061
  10. BETAMETHASONE G [Suspect]
     Active Substance: BETAMETHASONE\GENTAMICIN
     Indication: STEVENS-JOHNSON SYNDROME
     Dosage: UNK, VULVA
     Route: 061
  11. MOXIFLOXACIN. [Concomitant]
     Active Substance: MOXIFLOXACIN
     Indication: ATYPICAL PNEUMONIA
     Dosage: 400 MILLIGRAM, QD
     Route: 065
     Dates: start: 202008
  12. FLUCLOXACILLIN [Concomitant]
     Active Substance: FLUCLOXACILLIN
     Indication: PNEUMONIA MYCOPLASMAL
     Dosage: 2 GRAM
     Route: 065
     Dates: start: 202008
  13. CHLORAMPHENICOL [Suspect]
     Active Substance: CHLORAMPHENICOL
     Indication: STEVENS-JOHNSON SYNDROME
     Dosage: UNK FOR LEFT EYE
     Route: 047
     Dates: start: 202008
  14. DEXAMETHASONE. [Concomitant]
     Active Substance: DEXAMETHASONE
     Indication: ABDOMINAL PAIN
     Dosage: UNK, ELASTOMERIC PUMP
     Route: 065
     Dates: start: 202008
  15. TRIAMCINOLONE [Suspect]
     Active Substance: TRIAMCINOLONE
     Indication: STEVENS-JOHNSON SYNDROME
     Dosage: UNK
     Route: 061
  16. MORPHINE [Suspect]
     Active Substance: MORPHINE
     Indication: ANALGESIC THERAPY
     Dosage: 80 MILLIGRAM
     Route: 065
     Dates: start: 202008
  17. DEXAMETHASONE ACETATE;NEOMYCIN SULFATE;POLYMYXIN B SULFATE [Suspect]
     Active Substance: DEXAMETHASONE\NEOMYCIN SULFATE\POLYMYXIN B SULFATE
     Indication: STEVENS-JOHNSON SYNDROME
     Dosage: UNK (RIGHT EYE)
     Route: 047
     Dates: start: 202008
  18. LIDOCAINE. [Suspect]
     Active Substance: LIDOCAINE
     Indication: ANALGESIC THERAPY
     Dosage: UNK
     Route: 065
     Dates: start: 202008
  19. ESKETAMINE [Concomitant]
     Active Substance: ESKETAMINE
     Indication: ABDOMINAL PAIN
     Dosage: UNK, ELASTOMERIC PUMP
     Route: 065
     Dates: start: 202008

REACTIONS (3)
  - General physical health deterioration [Fatal]
  - Electrolyte imbalance [Unknown]
  - Drug ineffective [Unknown]

NARRATIVE: CASE EVENT DATE: 2020
